FAERS Safety Report 9501907 (Version 2)
Quarter: 2014Q2

REPORT INFORMATION
  Report Type: Spontaneous
  Country: US (occurrence: US)
  Receive Date: 20130905
  Receipt Date: 20140515
  Transmission Date: 20141212
  Serious: No
  Sender: FDA-Public Use
  Company Number: US-ASTRAZENECA-2013SE47708

PATIENT
  Age: 59 Year
  Sex: Female

DRUGS (2)
  1. SYMBICORT [Suspect]
     Dosage: 160/4.5, DOSE, FREQUENCY UNKNOWN
     Route: 055
  2. PROAIR [Concomitant]

REACTIONS (2)
  - Dyspnoea [Unknown]
  - Intentional product misuse [Unknown]
